FAERS Safety Report 7021081-5 (Version None)
Quarter: 2010Q3

REPORT INFORMATION
  Report Type: 
  Country: None (occurrence: None)
  Receive Date: 20100929
  Receipt Date: 20100924
  Transmission Date: 20110219
  Serious: Yes (Death, Other)
  Sender: FDA-Public Use
  Company Number: FR-CEPHALON-2010005154

PATIENT
  Age: 60 Year
  Sex: Female

DRUGS (2)
  1. ACTIQ [Suspect]
     Indication: CANCER PAIN
     Route: 002
  2. OPIOID THERAPY [Concomitant]

REACTIONS (3)
  - COLON CANCER [None]
  - HYPOTENSION [None]
  - LOSS OF CONSCIOUSNESS [None]
